FAERS Safety Report 4395100-9 (Version None)
Quarter: 2004Q3

REPORT INFORMATION
  Report Type: 
  Country: None (occurrence: None)
  Receive Date: 20040706
  Receipt Date: 20040622
  Transmission Date: 20050211
  Serious: Yes (Death, Hospitalization)
  Sender: FDA-Public Use
  Company Number: 04P-066-0264652-00

PATIENT
  Age: 75 Year
  Sex: Male

DRUGS (1)
  1. HUMIRA [Suspect]
     Indication: RHEUMATOID ARTHRITIS
     Dosage: 40 MG, 1 IN 2 WK, SUBCUTANEOUS
     Route: 058
     Dates: start: 20040326, end: 20040517

REACTIONS (6)
  - CARDIAC ARREST [None]
  - CHEST PAIN [None]
  - CHRONIC RESPIRATORY FAILURE [None]
  - CORONARY ARTERY DISEASE [None]
  - HYPERTENSION [None]
  - PULMONARY OEDEMA [None]
